FAERS Safety Report 6333195-3 (Version None)
Quarter: 2009Q3

REPORT INFORMATION
  Report Type: 
  Country: None (occurrence: None)
  Receive Date: 20090828
  Receipt Date: 20090818
  Transmission Date: 20100115
  Serious: Yes (Hospitalization)
  Sender: FDA-Public Use
  Company Number: JP-EISAI INC.-E3810-03086-SPO-JP

PATIENT
  Age: 81 Year
  Sex: Female

DRUGS (1)
  1. PARIET (RABEPRAZOLE) [Suspect]
     Route: 048

REACTIONS (3)
  - DECREASED APPETITE [None]
  - PYREXIA [None]
  - WEIGHT DECREASED [None]
